FAERS Safety Report 9170609 (Version 1)
Quarter: 2013Q1

REPORT INFORMATION
  Report Type: Spontaneous
  Country: KR (occurrence: None)
  Receive Date: 20130312
  Receipt Date: 20130312
  Transmission Date: 20140127
  Serious: Yes (Hospitalization)
  Sender: FDA-Public Use
  Company Number: IMP_06588_2013

PATIENT
  Age: 62 Year
  Sex: Male

DRUGS (6)
  1. METFORMIN [Suspect]
     Indication: PRODUCT USED FOR UNKNOWN INDICATION
  2. AMLODIPINE [Concomitant]
  3. VALSARTAN [Concomitant]
  4. CALCIUM CARBONATE [Concomitant]
  5. VITAMIN B COMPLEX W/C AND CYCANOCOBALAMIN [Concomitant]
  6. GLICLAZIDE [Concomitant]

REACTIONS (8)
  - Dysarthria [None]
  - Gait disturbance [None]
  - Asthenia [None]
  - Decreased appetite [None]
  - Abdominal discomfort [None]
  - Anaemia [None]
  - Somnolence [None]
  - Myoclonus [None]
